FAERS Safety Report 24041619 (Version 2)
Quarter: 2024Q3

REPORT INFORMATION
  Report Type: Report from Study
  Country: ES (occurrence: ES)
  Receive Date: 20240702
  Receipt Date: 20240722
  Transmission Date: 20241016
  Serious: Yes (Disabling, Other)
  Sender: UCB
  Company Number: ES-UCBSA-2024030765

PATIENT
  Age: 67 Year
  Sex: Female

DRUGS (3)
  1. ROMOSOZUMAB [Suspect]
     Active Substance: ROMOSOZUMAB
     Indication: Osteoporosis
     Dosage: 210 MILLIGRAM, MONTHLY (QM) (2 PENS OF 105 MG MONTHLY))
     Route: 058
     Dates: start: 20231124
  2. KEPPRA [Suspect]
     Active Substance: LEVETIRACETAM
     Indication: Epilepsy
     Dosage: 500 MILLIGRAM, 2X/DAY (BID) (ONE IN THE MORNING AND ONE AT NIGHT)
     Dates: start: 2022, end: 202405
  3. KEPPRA [Suspect]
     Active Substance: LEVETIRACETAM
     Dosage: 750 MILLIGRAM, 2X/DAY (BID) DOSE TO 1 AND A HALF IN THE MORNING AND 1 AND A HALF AT NIGHT
     Dates: start: 202405

REACTIONS (6)
  - Sciatica [Recovering/Resolving]
  - Arthralgia [Not Recovered/Not Resolved]
  - Petit mal epilepsy [Recovered/Resolved]
  - Epilepsy [Recovered/Resolved]
  - Movement disorder [Not Recovered/Not Resolved]
  - Off label use [Unknown]

NARRATIVE: CASE EVENT DATE: 20220101
